FAERS Safety Report 9940021 (Version 1)
Quarter: 2014Q1

REPORT INFORMATION
  Report Type: Report from Study
  Country: US (occurrence: US)
  Receive Date: 20140303
  Receipt Date: 20140303
  Transmission Date: 20141002
  Serious: No
  Sender: FDA-Public Use
  Company Number: US-ABBVIE-13P-163-1099418-00

PATIENT
  Age: 46 Year
  Sex: Female

DRUGS (5)
  1. HUMIRA [Suspect]
     Indication: PSORIASIS
     Dates: start: 20130402
  2. ALBUTEROL [Concomitant]
     Indication: ASTHMA
     Route: 055
     Dates: start: 2009
  3. QVAR [Concomitant]
     Indication: ASTHMA
     Route: 055
     Dates: start: 2009
  4. AVIANE [Concomitant]
     Indication: CONTRACEPTION
     Dates: start: 201302
  5. ATORVASTATIN [Concomitant]
     Indication: BLOOD CHOLESTEROL
     Dates: start: 201301

REACTIONS (1)
  - Injection site erythema [Recovered/Resolved]
